FAERS Safety Report 7512851-5 (Version None)
Quarter: 2011Q2

REPORT INFORMATION
  Report Type: 
  Country: None (occurrence: None)
  Receive Date: 20110531
  Receipt Date: 20110524
  Transmission Date: 20111010
  Serious: Yes (Hospitalization, Congenital Anomaly, Other)
  Sender: FDA-Public Use
  Company Number: US-ROXANE LABORATORIES, INC.-2011-RO-00719RO

PATIENT
  Sex: Male

DRUGS (6)
  1. PREDNISONE [Suspect]
     Indication: DRUG EXPOSURE DURING PREGNANCY
     Dosage: 5 MG
     Route: 064
  2. OMEPRAZOLE [Suspect]
     Indication: DRUG EXPOSURE DURING PREGNANCY
     Dosage: 20 MG
     Route: 064
  3. MYCOPHENOLATE MEFETIL [Suspect]
     Route: 064
  4. TACROLIMUS [Suspect]
     Indication: DRUG EXPOSURE DURING PREGNANCY
     Dosage: 6 MG
     Route: 064
  5. FERROUS SULFATE TAB [Suspect]
     Indication: DRUG EXPOSURE DURING PREGNANCY
     Dosage: 600 MG
     Route: 064
  6. MYCOPHENOLATE MEFETIL [Suspect]
     Indication: DRUG EXPOSURE DURING PREGNANCY
     Dosage: 1 G
     Route: 064

REACTIONS (6)
  - MULTIPLE CONGENITAL ABNORMALITIES [None]
  - RESPIRATORY DISTRESS [None]
  - HYPOTONIA [None]
  - FOETAL GROWTH RESTRICTION [None]
  - VISUAL ACUITY REDUCED [None]
  - FAILURE TO THRIVE [None]
